FAERS Safety Report 5902609-2 (Version None)
Quarter: 2008Q3

REPORT INFORMATION
  Report Type: 
  Country: None (occurrence: None)
  Receive Date: 20080926
  Receipt Date: 20080915
  Transmission Date: 20090109
  Serious: Yes (Death, Hospitalization)
  Sender: FDA-Public Use
  Company Number: 2008AP002407

PATIENT
  Age: 64 Year
  Sex: Female

DRUGS (5)
  1. CYCLOSPORINE [Suspect]
     Indication: IMMUNOSUPPRESSION
  2. PREDNISONE TAB [Suspect]
     Indication: IMMUNOSUPPRESSION
  3. MYCOPHENOLATE MOFETIL [Suspect]
     Indication: IMMUNOSUPPRESSION
  4. METHYLPREDNISOLONE [Suspect]
     Indication: IMMUNOSUPPRESSION
  5. RITUXIMAB [Suspect]
     Indication: IMMUNOSUPPRESSION
     Dosage: 1X

REACTIONS (15)
  - ACUTE ABDOMEN [None]
  - ASPERGILLOSIS [None]
  - ASTHENIA [None]
  - CARDIAC DISORDER [None]
  - COUGH [None]
  - CYTOMEGALOVIRUS INFECTION [None]
  - FATIGUE [None]
  - HAEMODYNAMIC INSTABILITY [None]
  - LARGE INTESTINE PERFORATION [None]
  - LEFT VENTRICULAR DYSFUNCTION [None]
  - LOWER GASTROINTESTINAL HAEMORRHAGE [None]
  - PANCYTOPENIA [None]
  - PYREXIA [None]
  - TRANSPLANT FAILURE [None]
  - TRANSPLANT REJECTION [None]
